FAERS Safety Report 5862137-X (Version None)
Quarter: 2008Q3

REPORT INFORMATION
  Report Type: 
  Country: None (occurrence: None)
  Receive Date: 20080828
  Receipt Date: 20071217
  Transmission Date: 20090109
  Serious: No
  Sender: FDA-Public Use
  Company Number: A0699858A

PATIENT
  Sex: Female

DRUGS (1)
  1. ACYCLOVIR [Suspect]
     Dosage: 500MG FIVE TIMES PER DAY
     Route: 048
     Dates: start: 20070101, end: 20070101

REACTIONS (1)
  - ALOPECIA [None]
